FAERS Safety Report 8743247 (Version 2)
Quarter: 2012Q4

REPORT INFORMATION
  Report Type: Report from Study
  Country: IE (occurrence: IE)
  Receive Date: 20120824
  Receipt Date: 20120830
  Transmission Date: 20130627
  Serious: Yes (Hospitalization)
  Sender: FDA-Public Use
  Company Number: IE-GLAXOSMITHKLINE-B0824833A

PATIENT
  Age: 51 Year
  Sex: Female
  Weight: 75.5 kg

DRUGS (4)
  1. LAPATINIB [Suspect]
     Indication: BREAST CANCER
     Dosage: 1000MG Per day
     Route: 048
     Dates: start: 20120809
  2. TRASTUZUMAB [Suspect]
     Indication: BREAST CANCER
     Dosage: 8MGK Cyclic
     Route: 042
     Dates: start: 20120809
  3. DOCETAXEL [Suspect]
     Indication: BREAST CANCER
     Dosage: 75MGM2 Cyclic
     Route: 042
     Dates: start: 20120809
  4. CARBOPLATIN [Suspect]
     Indication: BREAST CANCER
     Dosage: 790MG Cyclic
     Route: 042
     Dates: start: 20120809

REACTIONS (3)
  - Diarrhoea [Recovered/Resolved]
  - Vomiting [Recovered/Resolved]
  - Neutropenia [Recovered/Resolved]
